FAERS Safety Report 11825867 (Version 2)
Quarter: 2016Q2

REPORT INFORMATION
  Report Type: Spontaneous
  Country: DK (occurrence: DK)
  Receive Date: 20151211
  Receipt Date: 20160506
  Transmission Date: 20160815
  Serious: Yes (Death, Life-Threatening, Congenital Anomaly, Other)
  Sender: FDA-Public Use
  Company Number: DK-ELI_LILLY_AND_COMPANY-DK201512000284

PATIENT
  Age: 0 Day

DRUGS (6)
  1. CYMBALTA [Suspect]
     Active Substance: DULOXETINE HYDROCHLORIDE
     Dosage: 60 MG, EVERY TWO DAYS
     Route: 048
  2. INSULIN [Concomitant]
     Active Substance: INSULIN NOS
     Indication: GESTATIONAL DIABETES
     Dosage: UNK, UNKNOWN
     Route: 064
  3. INSULIN [Concomitant]
     Active Substance: INSULIN NOS
     Indication: GESTATIONAL DIABETES
     Dosage: UNK, UNKNOWN
     Route: 064
  4. CYMBALTA [Suspect]
     Active Substance: DULOXETINE HYDROCHLORIDE
     Indication: DEPRESSION
     Dosage: 30 MG, QD
     Route: 064
  5. CYMBALTA [Suspect]
     Active Substance: DULOXETINE HYDROCHLORIDE
     Indication: DEPRESSION
     Dosage: 30 MG, QD
     Route: 064
  6. CYMBALTA [Suspect]
     Active Substance: DULOXETINE HYDROCHLORIDE
     Dosage: 60 MG, EVERY TWO DAYS
     Route: 048

REACTIONS (11)
  - Kidney enlargement [Unknown]
  - Urethral valves [Fatal]
  - Oligohydramnios [Unknown]
  - Renal failure [Unknown]
  - Neonatal respiratory distress syndrome [Unknown]
  - Urinary tract obstruction [Unknown]
  - Respiratory failure [Unknown]
  - Urethral dilatation [Unknown]
  - Foetal exposure during pregnancy [Recovered/Resolved]
  - Hydronephrosis [Unknown]
  - Large for dates baby [Unknown]

NARRATIVE: CASE EVENT DATE: 20160215
